FAERS Safety Report 18265569 (Version 11)
Quarter: 2023Q1

REPORT INFORMATION
  Report Type: Report from Study
  Country: US (occurrence: US)
  Receive Date: 20200915
  Receipt Date: 20230214
  Transmission Date: 20230418
  Serious: Yes (Other)
  Sender: FDA-Public Use
  Company Number: US-SHIRE-US202029471

PATIENT
  Age: 27 Year
  Sex: Male

DRUGS (3)
  1. ANTI-INHIBITOR COAGULANT COMPLEX [Suspect]
     Active Substance: ANTI-INHIBITOR COAGULANT COMPLEX
     Indication: Product used for unknown indication
     Dosage: 2500 INTERNATIONAL UNIT
     Route: 042
  2. ANTI-INHIBITOR COAGULANT COMPLEX [Suspect]
     Active Substance: ANTI-INHIBITOR COAGULANT COMPLEX
     Dosage: 2520 INTERNATIONAL UNIT
     Route: 042
  3. ANTI-INHIBITOR COAGULANT COMPLEX [Suspect]
     Active Substance: ANTI-INHIBITOR COAGULANT COMPLEX
     Dosage: 2500 INTERNATIONAL UNIT
     Route: 065

REACTIONS (5)
  - Haemorrhage [Unknown]
  - Gingival bleeding [Unknown]
  - Haemarthrosis [Unknown]
  - Arthritis [Unknown]
  - Extra dose administered [Unknown]

NARRATIVE: CASE EVENT DATE: 20200903
